FAERS Safety Report 21461731 (Version 7)
Quarter: 2023Q1

REPORT INFORMATION
  Report Type: Spontaneous
  Country: CA (occurrence: CA)
  Receive Date: 20221015
  Receipt Date: 20230316
  Transmission Date: 20230418
  Serious: Yes (Hospitalization, Other)
  Sender: FDA-Public Use
  Company Number: CA-CELLTRION INC.-2022CA016655

PATIENT

DRUGS (11)
  1. INFLECTRA [Suspect]
     Active Substance: INFLIXIMAB-DYYB
     Indication: Crohn^s disease
     Dosage: 400 MG, AT WEEK 0, 2, 6, THEN EVERY 8 WEEKS
     Route: 042
     Dates: start: 20220920
  2. INFLECTRA [Suspect]
     Active Substance: INFLIXIMAB-DYYB
     Dosage: 400 MG, AT WEEK 0, 2, 6, THEN EVERY 8 WEEKS
     Route: 042
     Dates: start: 20220920
  3. INFLECTRA [Suspect]
     Active Substance: INFLIXIMAB-DYYB
     Dosage: 400 MG, AT WEEK 0, 2, 6, THEN EVERY 8 WEEKS
     Route: 042
     Dates: start: 20221004
  4. INFLECTRA [Suspect]
     Active Substance: INFLIXIMAB-DYYB
     Dosage: 400 MG, AT WEEK 0, 2, 6, THEN EVERY 8 WEEKS
     Route: 042
     Dates: start: 20221101
  5. INFLECTRA [Suspect]
     Active Substance: INFLIXIMAB-DYYB
     Dosage: 400 MG, AT WEEK 0, 2, 6, THEN EVERY 8 WEEKS
     Route: 042
     Dates: start: 20221230
  6. INFLECTRA [Suspect]
     Active Substance: INFLIXIMAB-DYYB
     Dosage: 400 MG, AT WEEK 0, 2, 6, THEN EVERY 8 WEEKS
     Route: 042
     Dates: start: 20230303
  7. ACETAMINOPHEN [Concomitant]
     Active Substance: ACETAMINOPHEN
     Indication: Premedication
     Dosage: 650 MG
     Dates: start: 20221230
  8. DIPHENHYDRAMINE [Concomitant]
     Active Substance: DIPHENHYDRAMINE
     Indication: Premedication
     Dosage: 50 MG
     Dates: start: 20221230
  9. METHYLPREDNISOLONE [Concomitant]
     Active Substance: METHYLPREDNISOLONE
     Indication: Premedication
     Dosage: 100 MG
     Dates: start: 20221230
  10. PENTASA [Concomitant]
     Active Substance: MESALAMINE
     Dosage: 1 DF, UNKNOWN
  11. PREDNISONE [Concomitant]
     Active Substance: PREDNISONE
     Dosage: 1 DF, UNKNOWN

REACTIONS (28)
  - Renal disorder [Recovering/Resolving]
  - Infusion related reaction [Unknown]
  - Intestinal obstruction [Unknown]
  - Back pain [Recovering/Resolving]
  - Abdominal pain upper [Recovering/Resolving]
  - Dyspnoea [Recovered/Resolved]
  - Tremor [Recovering/Resolving]
  - Feeling cold [Recovered/Resolved]
  - Paraesthesia [Recovered/Resolved]
  - Gastrointestinal disorder [Unknown]
  - Haematemesis [Unknown]
  - Ureteric obstruction [Unknown]
  - Malaise [Recovered/Resolved]
  - Pruritus [Recovered/Resolved]
  - Rash erythematous [Recovered/Resolved]
  - Nausea [Unknown]
  - Back pain [Unknown]
  - Blood pressure decreased [Recovered/Resolved]
  - Condition aggravated [Recovering/Resolving]
  - Agitation [Unknown]
  - Feeling abnormal [Not Recovered/Not Resolved]
  - Blood pressure fluctuation [Unknown]
  - Heart rate irregular [Unknown]
  - Arthralgia [Not Recovered/Not Resolved]
  - Anal fissure [Unknown]
  - Abscess [Not Recovered/Not Resolved]
  - Renal pain [Unknown]
  - Off label use [Unknown]

NARRATIVE: CASE EVENT DATE: 20220101
